FAERS Safety Report 8381825-7 (Version None)
Quarter: 2012Q2

REPORT INFORMATION
  Report Type: 
  Country: None (occurrence: None)
  Receive Date: 20120522
  Receipt Date: 20120507
  Transmission Date: 20120825
  Serious: Yes (Hospitalization)
  Sender: FDA-Public Use
  Company Number: JPI-P-021021

PATIENT
  Age: 68 Year
  Sex: Female
  Weight: 86.1834 kg

DRUGS (9)
  1. ACETYLSALICYLIC ACID SRT [Concomitant]
  2. LEVOTHYROXINE SODIUM [Concomitant]
  3. PRAMIPEXOLE DIHYDROCHLORIDE [Concomitant]
  4. LAMOTRGINE [Concomitant]
  5. SIMVASTATIN [Concomitant]
  6. XYREM [Suspect]
     Indication: HYPERSOMNIA
     Dosage: ORAL 6 GM (3 GM, 2 IN 1 D), ORAL
     Route: 048
     Dates: start: 20050901
  7. XYREM [Suspect]
     Indication: HYPERSOMNIA
     Dosage: ORAL 6 GM (3 GM, 2 IN 1 D), ORAL
     Route: 048
     Dates: end: 20120101
  8. XYREM [Suspect]
     Indication: HYPERSOMNIA
     Dosage: ORAL 6 GM (3 GM, 2 IN 1 D), ORAL
     Route: 048
     Dates: start: 20120101
  9. PRAMIPEXOLE DIHYDROCHLORIDE [Concomitant]

REACTIONS (2)
  - SMALL INTESTINAL OBSTRUCTION [None]
  - PAIN [None]
